FAERS Safety Report 14612201 (Version 1)
Quarter: 2018Q1

REPORT INFORMATION
  Report Type: Spontaneous
  Country: FR (occurrence: FR)
  Receive Date: 20180308
  Receipt Date: 20180308
  Transmission Date: 20180509
  Serious: Yes (Hospitalization)
  Sender: FDA-Public Use
  Company Number: FR-FERRING PHARMACEUTICALS A/S-2018FE01021

PATIENT

DRUGS (1)
  1. PROPESS [Suspect]
     Active Substance: DINOPROSTONE
     Indication: INDUCTION OF CERVIX RIPENING
     Dosage: 1 DF UNKNOWN FREQUENCY
     Route: 067

REACTIONS (2)
  - Uterine atony [Recovered/Resolved]
  - Caesarean section [Recovered/Resolved with Sequelae]

NARRATIVE: CASE EVENT DATE: 20180209
